FAERS Safety Report 5586140-2 (Version None)
Quarter: 2008Q1

REPORT INFORMATION
  Report Type: 
  Country: None (occurrence: None)
  Receive Date: 20080104
  Receipt Date: 20071227
  Transmission Date: 20080703
  Serious: Yes (Other)
  Sender: FDA-Public Use
  Company Number: LTI2008A00002

PATIENT
  Age: 60 Year
  Sex: Female

DRUGS (4)
  1. ACTOS [Suspect]
     Indication: TYPE 2 DIABETES MELLITUS
     Dosage: 30 MG (30 MG, 1 IN 1 D), ORAL
     Route: 048
     Dates: start: 20060901, end: 20071204
  2. AMARYL [Concomitant]
  3. METFORMIN (METFORMIN) [Concomitant]
  4. ASPEGIC 1000 [Concomitant]

REACTIONS (1)
  - ARTHRALGIA [None]
